FAERS Safety Report 13703681 (Version 1)
Quarter: 2017Q2

REPORT INFORMATION
  Report Type: Spontaneous
  Country: US (occurrence: US)
  Receive Date: 20170629
  Receipt Date: 20170629
  Transmission Date: 20170830
  Serious: No
  Sender: FDA-Public Use
  Company Number: US-AVEDRO-AVE-2017-0126-AE

PATIENT
  Age: 40 Year
  Sex: Male

DRUGS (4)
  1. KXL SYSTEM [Suspect]
     Active Substance: DEVICE
     Indication: KERATOCONUS
     Route: 047
     Dates: start: 20170411, end: 20170411
  2. TETRACAINE. [Concomitant]
     Active Substance: TETRACAINE
     Indication: PRODUCT USED FOR UNKNOWN INDICATION
     Dosage: 1 DROP AT 9:37, 9:44, 9:59 AND 10:15
     Route: 047
     Dates: start: 20170411, end: 20170411
  3. PHOTREXA VISCOUS [Suspect]
     Active Substance: RIBOFLAVIN 5^-PHOSPHATE SODIUM
     Indication: KERATOCONUS
     Dosage: EVERY 2 MINUTES
     Route: 047
     Dates: start: 20170411, end: 20170411
  4. PHOTREXA [Suspect]
     Active Substance: RIBOFLAVIN 5^-PHOSPHATE SODIUM
     Indication: KERATOCONUS
     Dosage: 2 DROPS EVERY 5-10 SECONDS
     Route: 047
     Dates: start: 20170411, end: 20170411

REACTIONS (8)
  - Corneal oedema [Recovering/Resolving]
  - Corneal infiltrates [Recovering/Resolving]
  - Vision blurred [Recovering/Resolving]
  - Eye pain [Recovering/Resolving]
  - Photophobia [Recovering/Resolving]
  - Corneal opacity [Recovering/Resolving]
  - Corneal epithelium defect [Recovering/Resolving]
  - Corneal scar [Recovering/Resolving]

NARRATIVE: CASE EVENT DATE: 20170412
